FAERS Safety Report 8014967-6 (Version None)
Quarter: 2011Q4

REPORT INFORMATION
  Report Type: 
  Country: None (occurrence: None)
  Receive Date: 20111229
  Receipt Date: 20110907
  Transmission Date: 20120403
  Serious: Yes (Hospitalization)
  Sender: FDA-Public Use
  Company Number: PHFR2011GB05248

PATIENT
  Sex: Male

DRUGS (3)
  1. CLOZARIL [Suspect]
     Dosage: 25 MG/DAY
     Route: 048
  2. CLOZARIL [Suspect]
     Indication: SCHIZOPHRENIA
     Dosage: 400 MG, UNK
     Route: 048
     Dates: start: 20010130
  3. CLOZARIL [Suspect]
     Dosage: 400 MG/DAY
     Route: 048

REACTIONS (3)
  - WHITE BLOOD CELL COUNT INCREASED [None]
  - MENTAL IMPAIRMENT [None]
  - NEUTROPHIL COUNT INCREASED [None]
